FAERS Safety Report 8322714-3 (Version None)
Quarter: 2012Q2

REPORT INFORMATION
  Report Type: 
  Country: None (occurrence: None)
  Receive Date: 20120426
  Receipt Date: 20120419
  Transmission Date: 20120825
  Serious: Yes (Hospitalization)
  Sender: FDA-Public Use
  Company Number: 2012S1000477

PATIENT
  Age: 68 Year
  Sex: Female

DRUGS (2)
  1. LIVALO [Suspect]
     Indication: HYPERTRIGLYCERIDAEMIA
     Dosage: 2 MG; 1X; PO
     Route: 048
     Dates: start: 20120314, end: 20120402
  2. LIVALO [Suspect]
     Indication: DYSLIPIDAEMIA
     Dosage: 2 MG; 1X; PO
     Route: 048
     Dates: start: 20120314, end: 20120402

REACTIONS (2)
  - LARGE INTESTINE PERFORATION [None]
  - HEPATIC ENZYME INCREASED [None]
